FAERS Safety Report 9904422 (Version 2)
Quarter: 2014Q2

REPORT INFORMATION
  Report Type: Spontaneous
  Country: FR (occurrence: FR)
  Receive Date: 20140218
  Receipt Date: 20140414
  Transmission Date: 20141212
  Serious: Yes (Hospitalization)
  Sender: FDA-Public Use
  Company Number: FR-SA-2014SA016761

PATIENT
  Age: 46 Year
  Sex: Male
  Weight: 90 kg

DRUGS (4)
  1. LOVENOX [Suspect]
     Indication: PROPHYLAXIS
     Dosage: STRENGTH 0.4ML
     Route: 065
     Dates: start: 20130602, end: 20130612
  2. COVERSYL [Concomitant]
  3. SIMVASTATIN [Concomitant]
  4. KARDEGIC [Concomitant]

REACTIONS (1)
  - Phlebitis [Recovering/Resolving]
